FAERS Safety Report 7404779-6 (Version None)
Quarter: 2011Q2

REPORT INFORMATION
  Report Type: 
  Country: None (occurrence: None)
  Receive Date: 20110411
  Receipt Date: 20110405
  Transmission Date: 20111010
  Serious: Yes (Death, Hospitalization)
  Sender: FDA-Public Use
  Company Number: US-ELI_LILLY_AND_COMPANY-US201103001931

PATIENT
  Sex: Female
  Weight: 59 kg

DRUGS (6)
  1. PEMETREXED [Suspect]
     Indication: NON-SMALL CELL LUNG CANCER
     Dosage: 500 MG/M2, OTHER
     Route: 042
     Dates: start: 20101123
  2. INSULIN [Concomitant]
     Indication: DIABETES MELLITUS
     Route: 058
  3. CARBOPLATIN [Suspect]
     Indication: NON-SMALL CELL LUNG CANCER
     Dosage: UNK, OTHER
     Route: 042
     Dates: start: 20101123
  4. FOLIC ACID [Concomitant]
  5. DEXAMETHASONE [Concomitant]
  6. VITAMIN B-12 [Concomitant]
     Indication: PREMEDICATION

REACTIONS (7)
  - NEUTROPHIL COUNT ABNORMAL [None]
  - THROMBOCYTOPENIA [None]
  - CONFUSIONAL STATE [None]
  - ASPARTATE AMINOTRANSFERASE INCREASED [None]
  - MENTAL STATUS CHANGES [None]
  - RESPIRATORY FAILURE [None]
  - DEHYDRATION [None]
